FAERS Safety Report 6878439-4 (Version None)
Quarter: 2010Q3

REPORT INFORMATION
  Report Type: 
  Country: None (occurrence: None)
  Receive Date: 20100728
  Receipt Date: 20100727
  Transmission Date: 20110219
  Serious: Yes (Hospitalization)
  Sender: FDA-Public Use
  Company Number: A0872504A

PATIENT
  Age: 69 Year
  Sex: Male

DRUGS (2)
  1. NICODERM CQ [Suspect]
     Route: 062
     Dates: start: 20100723, end: 20100724
  2. PRAVASTATIN [Concomitant]
     Indication: BLOOD CHOLESTEROL INCREASED

REACTIONS (5)
  - DIZZINESS [None]
  - MIGRAINE [None]
  - NAUSEA [None]
  - OVERDOSE [None]
  - VISION BLURRED [None]
